FAERS Safety Report 16530890 (Version 1)
Quarter: 2019Q3

REPORT INFORMATION
  Report Type: Spontaneous
  Country: BA (occurrence: BA)
  Receive Date: 20190704
  Receipt Date: 20190704
  Transmission Date: 20191004
  Serious: Yes (Death, Other)
  Sender: FDA-Public Use
  Company Number: PHHY2019BA153878

PATIENT
  Age: 57 Year
  Sex: Female

DRUGS (3)
  1. ZOLEDRONIC ACID. [Concomitant]
     Active Substance: ZOLEDRONIC ACID
     Indication: METASTASES TO BONE
     Dosage: UNK UNK, Q4W
     Route: 065
  2. PACLITAXEL. [Suspect]
     Active Substance: PACLITAXEL
     Indication: MALIGNANT MELANOMA
     Dosage: 175 MG/M2, UNK (EVERY THREE WEEKS)
     Route: 042
  3. CARBOPLATIN. [Suspect]
     Active Substance: CARBOPLATIN
     Indication: MALIGNANT MELANOMA
     Dosage: UNK (AUC 4) (TC REGIMEN) (EVERY THREE WEEKS)
     Route: 042

REACTIONS (8)
  - Granulocytopenia [Unknown]
  - Malignant melanoma [Fatal]
  - Malignant neoplasm progression [Fatal]
  - Neuropathy peripheral [Unknown]
  - Hypokalaemia [Unknown]
  - Anaemia [Unknown]
  - Hypocalcaemia [Unknown]
  - Leukopenia [Unknown]
